FAERS Safety Report 6411060-0 (Version None)
Quarter: 2009Q4

REPORT INFORMATION
  Report Type: 
  Country: None (occurrence: None)
  Receive Date: 20091021
  Receipt Date: 20091021
  Transmission Date: 20100525
  Serious: Yes (Other)
  Sender: FDA-Public Use
  Company Number: None

PATIENT
  Age: 51 Year
  Sex: Female
  Weight: 73.4827 kg

DRUGS (8)
  1. ENBREL [Suspect]
     Indication: RHEUMATOID ARTHRITIS
     Dosage: 50 MG -1 ML- WEEKLY SQ
     Route: 058
     Dates: start: 20080909, end: 20090921
  2. PREDNISONE TAB [Concomitant]
  3. OMEPRAZOLE [Concomitant]
  4. ALBUTEROL [Concomitant]
  5. BECLOMETHASONE DIPROPIONATE [Concomitant]
  6. ETODOLAC [Concomitant]
  7. FOLIC ACID [Concomitant]
  8. VITAMIN B-12 [Concomitant]

REACTIONS (4)
  - INFLUENZA LIKE ILLNESS [None]
  - LYMPHOCYTE COUNT DECREASED [None]
  - NEUTROPHIL COUNT DECREASED [None]
  - WHITE BLOOD CELL COUNT ABNORMAL [None]
